FAERS Safety Report 20144174 (Version 2)
Quarter: 2021Q4

REPORT INFORMATION
  Report Type: Spontaneous
  Country: FR (occurrence: FR)
  Receive Date: 20211203
  Receipt Date: 20211216
  Transmission Date: 20220303
  Serious: Yes (Death, Life-Threatening, Hospitalization, Other)
  Sender: FDA-Public Use
  Company Number: FR-Accord-246335

PATIENT
  Age: 43 Year
  Sex: Male

DRUGS (5)
  1. IRINOTECAN [Suspect]
     Active Substance: IRINOTECAN
     Indication: Adenocarcinoma of colon
     Dosage: ROUTE: HEPATIC ARTERIAL INFUSION?(HAI); RECEIVED 28 CYCLES
     Dates: start: 201809, end: 202004
  2. OXALIPLATIN [Suspect]
     Active Substance: OXALIPLATIN
     Indication: Adenocarcinoma of colon
     Dosage: ROUTE: HEPATIC ARTERIAL INFUSION?(HAI) DOSE 85 MG/M2 ; RECEIVED 28 CYCLES
     Dates: start: 201809, end: 202004
  3. LEUCOVORIN [Concomitant]
     Active Substance: LEUCOVORIN
     Indication: Adenocarcinoma of colon
     Dosage: RECEIVED 28 CYCLES
     Route: 042
     Dates: start: 201809, end: 202004
  4. FLUOROURACIL [Concomitant]
     Active Substance: FLUOROURACIL
     Indication: Adenocarcinoma of colon
     Dosage: RECEIVED 28 CYCLES
     Route: 042
     Dates: start: 201809, end: 202004
  5. PANITUMUMAB [Concomitant]
     Active Substance: PANITUMUMAB
     Indication: Adenocarcinoma of colon
     Dosage: RECEIVED 28 CYCLES
     Dates: start: 201809, end: 202004

REACTIONS (2)
  - Venoocclusive liver disease [Fatal]
  - Nodular regenerative hyperplasia [Fatal]

NARRATIVE: CASE EVENT DATE: 20200601
